FAERS Safety Report 5776270-4 (Version None)
Quarter: 2008Q2

REPORT INFORMATION
  Report Type: 
  Country: None (occurrence: None)
  Receive Date: 20080616
  Receipt Date: 20080603
  Transmission Date: 20081010
  Serious: Yes (Other)
  Sender: FDA-Public Use
  Company Number: 2008015220

PATIENT
  Age: 55 Year
  Sex: Female

DRUGS (10)
  1. ZYRTEC [Suspect]
  2. LYRICA [Suspect]
     Indication: FIBROMYALGIA
     Dosage: 50 MG/100 MG/125 MG,ORAL
     Route: 048
     Dates: end: 20071201
  3. BUPROPION HCL [Concomitant]
  4. NEFAZODONE HCL [Concomitant]
  5. PANTOPRAZOLE SODIUM [Concomitant]
  6. DOCUSATE SODIUM (DOCUSATE SODIUM) [Concomitant]
  7. CYCLOBENZAPRINE [Concomitant]
  8. SALBUTAMOL (SALBUTAMOL) [Concomitant]
  9. FISH OIL (FISH OIL) [Concomitant]
  10. CALCIUM (CALCIUM) [Concomitant]

REACTIONS (5)
  - BLOOD CHOLESTEROL INCREASED [None]
  - DRUG INEFFECTIVE [None]
  - FATIGUE [None]
  - OEDEMA PERIPHERAL [None]
  - PAIN [None]
